FAERS Safety Report 23558278 (Version 1)
Quarter: 2024Q1

REPORT INFORMATION
  Report Type: Spontaneous
  Country: ES (occurrence: ES)
  Receive Date: 20240223
  Receipt Date: 20240223
  Transmission Date: 20240409
  Serious: Yes (Other)
  Sender: FDA-Public Use
  Company Number: None

PATIENT
  Age: 23 Year
  Sex: Male
  Weight: 77 kg

DRUGS (4)
  1. FINASTERIDE [Suspect]
     Active Substance: FINASTERIDE
     Indication: Androgenetic alopecia
     Dosage: ONCE A DAY
     Route: 048
     Dates: start: 20221020
  2. LONITEN [Concomitant]
     Active Substance: MINOXIDIL
     Indication: Product used for unknown indication
     Dosage: ONCE A DAY
     Dates: start: 20221020
  3. ALPRAZOLAM [Concomitant]
     Active Substance: ALPRAZOLAM
     Indication: Generalised anxiety disorder
     Dosage: 3 TIMES A DAY
     Dates: start: 20230525
  4. CIPRALEX [Concomitant]
     Active Substance: ESCITALOPRAM OXALATE
     Indication: Anxiety disorder
     Dosage: ONCE A DAY
     Dates: start: 20230525

REACTIONS (2)
  - Erectile dysfunction [Not Recovered/Not Resolved]
  - Sexual activity decreased [Not Recovered/Not Resolved]

NARRATIVE: CASE EVENT DATE: 20231101
